FAERS Safety Report 7220366 (Version 3)
Quarter: 2013Q3

REPORT INFORMATION
  Report Type: Spontaneous
  Country: JP (occurrence: None)
  Receive Date: 20091202
  Receipt Date: 20130709
  Transmission Date: 20140515
  Serious: Yes (Hospitalization)
  Sender: FDA-Public Use
  Company Number: AUR-APL-2009-01391

PATIENT
  Age: 36 Year
  Sex: Female

DRUGS (4)
  1. PAROXETINE (PAROXETINE) [Suspect]
     Indication: PRODUCT USED FOR UNKNOWN INDICATION
  2. SERTRALINE [Suspect]
     Indication: PRODUCT USED FOR UNKNOWN INDICATION
     Dosage: ORAL
     Route: 048
     Dates: start: 200802, end: 200805
  3. MILNACIPRAN HYDROCHLORIDE [Suspect]
     Indication: PRODUCT USED FOR UNKNOWN INDICATION
  4. MAPROTILINE HYDROCHLORIDE [Suspect]
     Indication: PRODUCT USED FOR UNKNOWN INDICATION

REACTIONS (5)
  - Activation syndrome [None]
  - Drug ineffective [None]
  - Treatment noncompliance [None]
  - Abnormal behaviour [None]
  - Irritability [None]
